FAERS Safety Report 22149342 (Version 2)
Quarter: 2023Q1

REPORT INFORMATION
  Report Type: Report from Study
  Country: US (occurrence: US)
  Receive Date: 20230329
  Receipt Date: 20230331
  Transmission Date: 20230418
  Serious: No
  Sender: FDA-Public Use
  Company Number: US-002147023-NVSC2023US068235

PATIENT
  Sex: Female
  Weight: 127.01 kg

DRUGS (4)
  1. CLINDAMYCIN [Suspect]
     Active Substance: CLINDAMYCIN
     Indication: Hidradenitis
     Dosage: UNK (LOTION)
     Route: 065
  2. DOXYCYCLINE [Suspect]
     Active Substance: DOXYCYCLINE
     Indication: Hidradenitis
     Dosage: UNK
     Route: 048
  3. KETOCONAZOLE [Suspect]
     Active Substance: KETOCONAZOLE
     Indication: Hidradenitis
     Dosage: 2 %, TIW (SHAMPOO)
     Route: 061
  4. DERMA-SMOOTHE/FS [Suspect]
     Active Substance: FLUOCINOLONE ACETONIDE
     Indication: Hidradenitis
     Dosage: UNK (SCALP OIL, APPLY AT BED TIME)
     Route: 061

REACTIONS (3)
  - Condition aggravated [Unknown]
  - Hidradenitis [Unknown]
  - Treatment failure [Unknown]
